FAERS Safety Report 5936810-9 (Version None)
Quarter: 2008Q4

REPORT INFORMATION
  Report Type: 
  Country: None (occurrence: None)
  Receive Date: 20081029
  Receipt Date: 20081015
  Transmission Date: 20090506
  Serious: Yes (Other)
  Sender: FDA-Public Use
  Company Number: 230370K08USA

PATIENT
  Age: 45 Year
  Sex: Female

DRUGS (2)
  1. REBIF [Suspect]
     Indication: MULTIPLE SCLEROSIS
     Dosage: 44 MCG, 3 IN 1 WEEKS, SUBCUTANEOUS
     Route: 058
     Dates: start: 20020913
  2. WELLBUTRIN XL [Concomitant]

REACTIONS (6)
  - BASAL CELL CARCINOMA [None]
  - DECREASED APPETITE [None]
  - DEPRESSION [None]
  - LYMPHADENOPATHY [None]
  - MALIGNANT MELANOMA [None]
  - WEIGHT DECREASED [None]
